FAERS Safety Report 9404852 (Version 1)
Quarter: 2013Q3

REPORT INFORMATION
  Report Type: Spontaneous
  Country: US (occurrence: US)
  Receive Date: 20130717
  Receipt Date: 20130717
  Transmission Date: 20140515
  Serious: No
  Sender: FDA-Public Use
  Company Number: US-009507513-1307USA007653

PATIENT
  Age: 30 Year
  Sex: Female

DRUGS (4)
  1. SAPHRIS [Suspect]
     Indication: BIPOLAR DISORDER
     Dosage: 5 MG, UNK
     Route: 060
     Dates: start: 20130620, end: 20130620
  2. ABILIFY [Concomitant]
     Dosage: 20 MG, UNK
  3. KLONOPIN [Concomitant]
     Dosage: 3 MG, UNK
  4. EFFEXOR [Concomitant]
     Dosage: 225 MG, UNK

REACTIONS (1)
  - Swollen tongue [Unknown]
